FAERS Safety Report 15985338 (Version 1)
Quarter: 2019Q1

REPORT INFORMATION
  Report Type: Spontaneous
  Country: JP (occurrence: JP)
  Receive Date: 20190220
  Receipt Date: 20190220
  Transmission Date: 20190418
  Serious: Yes (Hospitalization, Other)
  Sender: FDA-Public Use
  Company Number: JP-PFIZER INC-2019067335

PATIENT
  Age: 68 Year
  Sex: Male

DRUGS (9)
  1. TS-1 [Concomitant]
     Active Substance: GIMERACIL\OTERACIL\TEGAFUR
     Dosage: 60MG/DOSE, CYCLIC (DAYS 1 TO 14)
     Dates: start: 201402
  2. 5-FU [FLUOROURACIL] [Concomitant]
     Active Substance: FLUOROURACIL
     Dosage: 400 MG/M2, CYCLIC (DAY 1)
     Dates: start: 201510
  3. OXALIPLATIN. [Suspect]
     Active Substance: OXALIPLATIN
     Indication: COLORECTAL CANCER
     Dosage: 130 MG/M2, CYCLIC (DAY 1)
     Route: 048
     Dates: start: 201402
  4. BEVACIZUMAB. [Concomitant]
     Active Substance: BEVACIZUMAB
     Dosage: 7.5 MG/KG, CYCLIC (DAY 1)
     Dates: start: 201402
  5. IRINOTECAN [Concomitant]
     Active Substance: IRINOTECAN
     Dosage: 200 MG/M2, CYCLIC (DAY 1)
     Dates: start: 201510
  6. ENTECAVIR. [Concomitant]
     Active Substance: ENTECAVIR
     Dosage: UNK
     Route: 048
  7. LEVOLEUCOVORIN. [Concomitant]
     Active Substance: LEVOLEUCOVORIN
     Dosage: 200 MG/M2, CYCLIC (DAY 1)
     Dates: start: 201510
  8. BEVACIZUMAB. [Concomitant]
     Active Substance: BEVACIZUMAB
     Dosage: UNK
     Route: 048
     Dates: start: 201510
  9. 5-FU [FLUOROURACIL] [Concomitant]
     Active Substance: FLUOROURACIL
     Dosage: 2400 MG/M2, CYCLIC (DAYS 1 AND 2)

REACTIONS (4)
  - Varices oesophageal [Recovering/Resolving]
  - Portal hypertension [Unknown]
  - Venoocclusive liver disease [Unknown]
  - Duodenal varices [Recovering/Resolving]

NARRATIVE: CASE EVENT DATE: 201606
